FAERS Safety Report 8501895 (Version 2)
Quarter: 2012Q4

REPORT INFORMATION
  Report Type: 
  Country: US (occurrence: US)
  Receive Date: 20120410
  Receipt Date: 20120912
  Transmission Date: 20130627
  Serious: Yes (Life-Threatening, Hospitalization)
  Sender: FDA-Public Use
  Company Number: US-BAYER-2012-032901

PATIENT
  Age: 38 Year
  Sex: Female
  Weight: 58.96 kg

DRUGS (33)
  1. CHINESE HERBAL SUPPLEMENT [Concomitant]
  2. TOPAMAX [Concomitant]
  3. NASACORT [Concomitant]
  4. CLARITIN D [Concomitant]
  5. PRINIVIL [Concomitant]
  6. OMEGA 3 FISH OIL [Concomitant]
  7. ALBUTEROL [Concomitant]
     Indication: ASTHMA
  8. CIPRO [Concomitant]
  9. FLONASE [Concomitant]
  10. YASMIN [Suspect]
     Indication: MENIERE^S DISEASE
     Dosage: UNK
     Route: 048
     Dates: start: 2001, end: 201112
  11. OCELLA [Suspect]
     Indication: MENIERE^S DISEASE
     Dosage: UNK
     Route: 048
     Dates: start: 2001, end: 201112
  12. HYDROCHLOROTHIAZIDE [Concomitant]
     Indication: FLUID RETENTION
     Dosage: 12.5 mg, daily
     Route: 048
     Dates: start: 2001
  13. ABILIFY [Concomitant]
     Indication: DEPRESSION
     Dosage: 15 mg, daily
     Route: 048
     Dates: start: 20110329, end: 20110418
  14. IMIPRIMINE PM [Concomitant]
     Indication: DEPRESSION
     Dosage: 50 mg, HS
     Route: 048
     Dates: start: 1988
  15. IMIPRIMINE PM [Concomitant]
     Indication: DEPRESSION
     Dosage: 50 mg, HS
     Route: 048
     Dates: start: 20110329, end: 20110419
  16. OFLOXACIN [Concomitant]
     Indication: EAR INFECTION
     Dosage: 2 drops both ears BID
     Dates: start: 20010406, end: 20110416
  17. PROVENTIL [Concomitant]
     Dosage: 2 puff(s), Q4HR as needed
  18. ADVAIR DISKUS [Concomitant]
     Indication: ASTHMA
     Dosage: 500/50 BID
     Dates: start: 2002
  19. ADVAIR DISKUS [Concomitant]
     Indication: ASTHMA
     Dosage: 500/50 BID
     Dates: start: 20110329, end: 20110419
  20. FLUTICASONE [Concomitant]
     Indication: NASAL POLYPS
     Dosage: 50 mcg two puffs BID per nostril
     Route: 045
     Dates: start: 20110329, end: 20110419
  21. NITRO-DUR [Concomitant]
     Indication: CARDIAC DISORDER
     Dosage: 0.2 mg Q1HR
     Route: 062
     Dates: start: 200707
  22. NITROLINGUAL [Concomitant]
     Indication: CHEST PAIN
     Dosage: UNK
     Dates: start: 200706
  23. CLOTRIMAZOLE [Concomitant]
     Dosage: 1 %, once daily as needed
     Route: 061
  24. AMOXICILLIN-CLAVULANATE [Concomitant]
     Dosage: 875 mg, BID
     Route: 048
  25. XOPENEX [Concomitant]
     Dosage: 1 vial twice to three times daily as needed
  26. CLONAZEPAM [Concomitant]
     Dosage: 0.5 mg, daily
     Route: 048
  27. ZOLPIDEM [Concomitant]
     Indication: INSOMNIA
     Dosage: 12.5 mg, HS
     Route: 048
  28. DOXYCYCLINE HYCATE [Concomitant]
     Indication: EAR INFECTION
     Dosage: 100 mg, BID
     Route: 048
  29. XANAX [Concomitant]
     Indication: MENTAL DISORDER
     Dosage: UNK
     Route: 048
     Dates: start: 1992
  30. IMDUR [Concomitant]
     Indication: CARDIAC DISORDER
     Dosage: UNK
     Route: 048
     Dates: start: 200706
  31. DILTIAZEM [Concomitant]
     Indication: CARDIAC DISORDER
     Dosage: 30 mg, UNK
     Route: 048
     Dates: start: 200706, end: 201108
  32. CLARITIN [Concomitant]
     Indication: MULTIPLE ALLERGIES
     Dosage: 10 mg, nightly
     Route: 048
     Dates: start: 20110329, end: 20110418
  33. MELATONIN [Concomitant]
     Indication: INSOMNIA
     Dosage: 3 mg, nightly
     Route: 048
     Dates: start: 20110401, end: 20110418

REACTIONS (3)
  - Myocardial infarction [None]
  - Pulmonary embolism [Recovered/Resolved]
  - Pain [Recovered/Resolved]
